FAERS Safety Report 14136927 (Version 2)
Quarter: 2018Q1

REPORT INFORMATION
  Report Type: Report from Study
  Country: US (occurrence: US)
  Receive Date: 20171027
  Receipt Date: 20180123
  Transmission Date: 20180508
  Serious: No
  Sender: FDA-Public Use
  Company Number: US-AMGEN-USASL2017142293

PATIENT
  Age: 41 Year
  Sex: Male

DRUGS (1)
  1. REPATHA [Suspect]
     Active Substance: EVOLOCUMAB
     Indication: TYPE V HYPERLIPIDAEMIA
     Dosage: 140 MG, Q2WK (EVERY OTHER WEEK)
     Route: 065

REACTIONS (6)
  - Pain [Unknown]
  - Eye pain [Unknown]
  - Injection site bruising [Unknown]
  - Gastric disorder [Unknown]
  - Hyperhidrosis [Unknown]
  - Drug dose omission [Unknown]
